FAERS Safety Report 10801254 (Version 2)
Quarter: 2015Q1

REPORT INFORMATION
  Report Type: Spontaneous
  Country: US (occurrence: US)
  Receive Date: 20150217
  Receipt Date: 20150226
  Transmission Date: 20150721
  Serious: Yes (Other)
  Sender: FDA-Public Use
  Company Number: US-AMGEN-USASP2015008021

PATIENT
  Age: 66 Year
  Sex: Male
  Weight: 153.3 kg

DRUGS (24)
  1. NASACORT [Concomitant]
     Active Substance: TRIAMCINOLONE ACETONIDE
     Dosage: 55 MUG, BID
     Route: 045
  2. SIMVASTATIN. [Concomitant]
     Active Substance: SIMVASTATIN
     Dosage: 40 MG, QD
  3. TYLENOL PM EXTRA STRENGTH [Concomitant]
     Active Substance: ACETAMINOPHEN\DIPHENHYDRAMINE HYDROCHLORIDE
  4. PROLIA [Suspect]
     Active Substance: DENOSUMAB
     Indication: PROSTATE CANCER
     Dosage: 60 MG, Q6MO
     Route: 058
     Dates: start: 20130819, end: 20140819
  5. ELIGARD [Concomitant]
     Active Substance: LEUPROLIDE ACETATE
     Dosage: UNK UNK, Q6MO
  6. SERTRALINE [Concomitant]
     Active Substance: SERTRALINE HYDROCHLORIDE
     Dosage: 25 MG, UNK
  7. VITAMIN D3 [Concomitant]
     Active Substance: CHOLECALCIFEROL
  8. ZOSTER IMMUNOGLOBULIN [Concomitant]
  9. PANTOPRAZOLE [Concomitant]
     Active Substance: PANTOPRAZOLE SODIUM
     Dosage: 40 MG, QD
     Route: 048
  10. INFLUENZA HA [Concomitant]
  11. LUPRON [Concomitant]
     Active Substance: LEUPROLIDE ACETATE
     Indication: PROSTATE CANCER
     Dosage: 45 MG, Q4MO
     Dates: start: 20060307
  12. ASPIRIN                            /00002701/ [Concomitant]
     Active Substance: ASPIRIN
     Dosage: 81 MG, QD
     Route: 048
  13. MULTIVITAMIN                       /00097801/ [Concomitant]
     Active Substance: VITAMINS
     Dosage: UNK UNK, QD
  14. FLUTICASONE [Concomitant]
     Active Substance: FLUTICASONE\FLUTICASONE PROPIONATE
  15. LOSARTAN [Concomitant]
     Active Substance: LOSARTAN
     Dosage: 100 MG, QD
     Route: 048
  16. PNEUMOCOCCAL VACCINE [Concomitant]
     Active Substance: PNEUMOCOCCAL VACCINE POLYVALENT
  17. ALLOPURINOL. [Concomitant]
     Active Substance: ALLOPURINOL
     Dosage: 300 MG, QD
  18. LYRICA [Concomitant]
     Active Substance: PREGABALIN
     Dosage: 150 MG, TID
     Route: 048
  19. TRAZODONE [Concomitant]
     Active Substance: TRAZODONE HYDROCHLORIDE
     Dosage: 150 MG, QD
     Route: 048
  20. ZOLPIDEM [Concomitant]
     Active Substance: ZOLPIDEM\ZOLPIDEM TARTRATE
     Dosage: 10 MG, UNK
  21. B COMPLEX                          /00322001/ [Concomitant]
     Dosage: UNK UNK, QD
     Route: 048
  22. BUPROPION [Concomitant]
     Active Substance: BUPROPION
     Dosage: 300 MG, QD
  23. LEVOTHYROXINE [Concomitant]
     Active Substance: LEVOTHYROXINE
     Dosage: 175 MUG, QD
     Route: 048
  24. PROBIOTIC ACIDOPHILUS              /00079701/ [Concomitant]

REACTIONS (25)
  - Dysphagia [Not Recovered/Not Resolved]
  - Weight decreased [Unknown]
  - Obesity [Unknown]
  - Snoring [Unknown]
  - Tongue disorder [Not Recovered/Not Resolved]
  - Exostosis of jaw [Not Recovered/Not Resolved]
  - Upper-airway cough syndrome [Unknown]
  - Speech disorder [Not Recovered/Not Resolved]
  - Odynophagia [Unknown]
  - Hypertension [Unknown]
  - Oedema peripheral [Unknown]
  - Swollen tongue [Unknown]
  - Hyperuricaemia [Unknown]
  - Lymphadenopathy [Not Recovered/Not Resolved]
  - Anxiety [Unknown]
  - Ear pain [Unknown]
  - Dysphonia [Unknown]
  - Insomnia [Not Recovered/Not Resolved]
  - Dysphagia [Unknown]
  - Dyspepsia [Unknown]
  - Eating disorder [Not Recovered/Not Resolved]
  - Sneezing [Unknown]
  - Hyperlipidaemia [Unknown]
  - Ear discomfort [Unknown]
  - Oropharyngeal pain [Unknown]

NARRATIVE: CASE EVENT DATE: 201411
